FAERS Safety Report 8773374 (Version 1)
Quarter: 2012Q4

REPORT INFORMATION
  Report Type: 
  Country: US (occurrence: US)
  Receive Date: 20120907
  Receipt Date: 20120907
  Transmission Date: 20130627
  Serious: No
  Sender: FDA-Public Use
  Company Number: US-BAYER-2012-093006

PATIENT
  Age: 37 Year
  Sex: Female
  Weight: 73 kg

DRUGS (7)
  1. BETASERON [Suspect]
     Dosage: 0.25 ml, QOD
     Route: 058
  2. BETASERON [Suspect]
     Dosage: 0.5 ml, QOD
     Route: 058
  3. BETASERON [Suspect]
     Dosage: 0.75 ml, QOD
     Route: 058
  4. BETASERON [Suspect]
     Dosage: 1 ml, QOD
     Route: 058
  5. XANAX [Concomitant]
     Dosage: 2 mg, UNK
     Route: 048
  6. OXYCODONE [Concomitant]
     Dosage: 20 mg, UNK
     Route: 048
  7. LYRICA [Concomitant]
     Dosage: 50 mg, UNK
     Route: 048

REACTIONS (2)
  - Influenza like illness [Unknown]
  - Injection site reaction [Unknown]
